FAERS Safety Report 7609250-4 (Version None)
Quarter: 2011Q3

REPORT INFORMATION
  Report Type: 
  Country: None (occurrence: None)
  Receive Date: 20110714
  Receipt Date: 20110706
  Transmission Date: 20111222
  Serious: Yes (Hospitalization, Other)
  Sender: FDA-Public Use
  Company Number: FR-ELI_LILLY_AND_COMPANY-FR201103008392

PATIENT
  Sex: Male

DRUGS (4)
  1. GEMZAR [Suspect]
     Dosage: 600 MG/M2, ON DAY 8
     Dates: start: 20101126
  2. DOCETAXEL [Concomitant]
     Dosage: 140 MG, DAY ONE
     Route: 042
     Dates: start: 20101119, end: 20101119
  3. GEMZAR [Suspect]
     Dosage: 1995 MG/M2, AT DAY 1, 8 AND 15 OF 28 DAY CYCLE FOR A 28 DAYS CYCLE
     Dates: start: 20101119, end: 20101128
  4. ELOXATIN [Concomitant]
     Dosage: 160 MG, ON DAY ONE
     Route: 042
     Dates: start: 20101119, end: 20101119

REACTIONS (13)
  - COOMBS NEGATIVE HAEMOLYTIC ANAEMIA [None]
  - SURGERY [None]
  - ANAEMIA [None]
  - WHITE BLOOD CELL COUNT ABNORMAL [None]
  - FIBRIN D DIMER INCREASED [None]
  - ABDOMINAL PAIN [None]
  - BLOOD BILIRUBIN ABNORMAL [None]
  - HAPTOGLOBIN ABNORMAL [None]
  - NEOPLASM MALIGNANT [None]
  - HAEMOGLOBIN ABNORMAL [None]
  - PLATELET COUNT DECREASED [None]
  - BLOOD LACTATE DEHYDROGENASE INCREASED [None]
  - C-REACTIVE PROTEIN ABNORMAL [None]
